FAERS Safety Report 6862010-4 (Version None)
Quarter: 2010Q3

REPORT INFORMATION
  Report Type: 
  Country: None (occurrence: None)
  Receive Date: 20100719
  Receipt Date: 20100708
  Transmission Date: 20110219
  Serious: Yes (Death)
  Sender: FDA-Public Use
  Company Number: 8054326

PATIENT
  Sex: Male

DRUGS (1)
  1. KEPPRA XR [Suspect]
     Dosage: 500 MG QD ORAL
     Route: 048

REACTIONS (1)
  - METASTATIC MALIGNANT MELANOMA [None]
